FAERS Safety Report 25448311 (Version 1)
Quarter: 2025Q2

REPORT INFORMATION
  Report Type: Report from Study
  Country: KR (occurrence: KR)
  Receive Date: 20250617
  Receipt Date: 20250617
  Transmission Date: 20250717
  Serious: Yes (Hospitalization)
  Sender: DAIICHI
  Company Number: KR-DSJP-DS-2025-146736-KR

PATIENT
  Age: 65 Year
  Sex: Female
  Weight: 58 kg

DRUGS (27)
  1. ENHERTU [Suspect]
     Active Substance: FAM-TRASTUZUMAB DERUXTECAN-NXKI
     Indication: HER2 positive breast cancer
     Route: 042
     Dates: start: 20240621, end: 20240621
  2. ENHERTU [Suspect]
     Active Substance: FAM-TRASTUZUMAB DERUXTECAN-NXKI
     Route: 042
     Dates: start: 20240712, end: 20240712
  3. ENHERTU [Suspect]
     Active Substance: FAM-TRASTUZUMAB DERUXTECAN-NXKI
     Route: 042
     Dates: start: 20240802, end: 20240802
  4. ENHERTU [Suspect]
     Active Substance: FAM-TRASTUZUMAB DERUXTECAN-NXKI
     Route: 042
     Dates: start: 20240823, end: 20240823
  5. ENHERTU [Suspect]
     Active Substance: FAM-TRASTUZUMAB DERUXTECAN-NXKI
     Route: 042
     Dates: start: 20240913, end: 20240913
  6. ENHERTU [Suspect]
     Active Substance: FAM-TRASTUZUMAB DERUXTECAN-NXKI
     Route: 042
     Dates: start: 20241008, end: 20241008
  7. ENHERTU [Suspect]
     Active Substance: FAM-TRASTUZUMAB DERUXTECAN-NXKI
     Route: 042
     Dates: start: 20241030, end: 20241030
  8. ENHERTU [Suspect]
     Active Substance: FAM-TRASTUZUMAB DERUXTECAN-NXKI
     Route: 042
     Dates: start: 20241120, end: 20241120
  9. ENHERTU [Suspect]
     Active Substance: FAM-TRASTUZUMAB DERUXTECAN-NXKI
     Route: 042
     Dates: start: 20241211, end: 20241211
  10. ENHERTU [Suspect]
     Active Substance: FAM-TRASTUZUMAB DERUXTECAN-NXKI
     Route: 042
     Dates: start: 20250102, end: 20250102
  11. BARACLUDE [Concomitant]
     Active Substance: ENTECAVIR
     Indication: Chronic hepatitis B
     Dosage: 1 DOSAGE FORM, QD
     Route: 048
     Dates: start: 20230524
  12. CALCIUM CARBONATE\CHOLECALCIFEROL [Concomitant]
     Active Substance: CALCIUM CARBONATE\CHOLECALCIFEROL
     Indication: Osteoporosis
     Dosage: 1 DOSAGE FORM, QD
     Route: 048
     Dates: start: 20210615
  13. NORVASC [Concomitant]
     Active Substance: AMLODIPINE BESYLATE
     Indication: Hypertension
     Dosage: 1 DOSAGE FORM, QD
     Route: 048
     Dates: start: 20240622
  14. HINECHOL [Concomitant]
     Indication: Neurogenic bladder
     Dosage: 1 DOSAGE FORM, QD
     Route: 048
     Dates: start: 20240613
  15. CROVATIN [Concomitant]
     Indication: Dyslipidaemia
     Dosage: 1 DOSAGE FORM, QD
     Route: 048
     Dates: start: 202208
  16. FERROUS SULFATE\PROTEASE [Concomitant]
     Active Substance: FERROUS SULFATE\PROTEASE
     Indication: Anaemia prophylaxis
     Dosage: 1 DOSAGE FORM, TID
     Route: 048
     Dates: start: 20240912
  17. TACOPEN [Concomitant]
     Indication: Pain in extremity
     Dosage: 1 DOSAGE FORM, BID
     Route: 048
     Dates: start: 20240617
  18. MUCOSTA SR [Concomitant]
     Indication: Prophylaxis against gastrointestinal ulcer
     Dosage: 1 DOSAGE FORM, BID
     Route: 048
     Dates: start: 20120703
  19. PELUBI [Concomitant]
     Indication: Prophylaxis against gastrointestinal ulcer
     Dosage: 45 MG, BID
     Route: 048
     Dates: start: 20240522
  20. DONG A OPALMON [Concomitant]
     Indication: Nervous system disorder prophylaxis
     Dosage: 1 DOSAGE FORM, BID
     Route: 048
     Dates: start: 20240522
  21. MEGAROZET [Concomitant]
     Indication: Dyslipidaemia
     Dosage: 1 DOSAGE FORM, QD
     Route: 048
     Dates: start: 2018
  22. HERBALS [Concomitant]
     Active Substance: HERBALS
     Indication: Dyspepsia
     Dosage: 1 DOSAGE FORM, TID
     Route: 048
     Dates: start: 20241024
  23. HERBALS [Concomitant]
     Active Substance: HERBALS
     Indication: Prophylaxis
  24. LYRICA [Concomitant]
     Active Substance: PREGABALIN
     Indication: Neuropathy peripheral
     Dosage: 1 DOSAGE FORM, BID
     Route: 048
     Dates: start: 20240620
  25. DROTIN [Concomitant]
     Indication: Neuropathy peripheral
     Dosage: 1 DOSAGE FORM, QD
     Route: 048
     Dates: start: 20240622
  26. FORLAX [MACROGOL 3350;POTASSIUM CHLORIDE;SODIUM BICARBONATE;SODIUM CHL [Concomitant]
     Indication: Constipation prophylaxis
     Dosage: 10 G, QD, FORMULATION: POWDER
     Route: 048
     Dates: start: 20241024
  27. MAXIPIME [Concomitant]
     Active Substance: CEFEPIME HYDROCHLORIDE
     Indication: Cystitis
     Dosage: 2 G, BID
     Route: 042
     Dates: start: 20250109, end: 20250112

REACTIONS (1)
  - Pancytopenia [Not Recovered/Not Resolved]

NARRATIVE: CASE EVENT DATE: 20250109
